FAERS Safety Report 13639283 (Version 1)
Quarter: 2017Q2

REPORT INFORMATION
  Report Type: Spontaneous
  Country: US (occurrence: US)
  Receive Date: 20170609
  Receipt Date: 20170609
  Transmission Date: 20170830
  Serious: No
  Sender: FDA-Public Use
  Company Number: US-ROCHE-1191401

PATIENT
  Sex: Female

DRUGS (4)
  1. CLONAZEPAM. [Suspect]
     Active Substance: CLONAZEPAM
     Indication: DYSKINESIA
  2. KLONOPIN [Suspect]
     Active Substance: CLONAZEPAM
     Indication: DYSKINESIA
  3. KLONOPIN [Suspect]
     Active Substance: CLONAZEPAM
     Indication: ANXIETY
     Dosage: 2-3 (1 DAYS)
     Route: 065
  4. CLONAZEPAM. [Suspect]
     Active Substance: CLONAZEPAM
     Indication: ANXIETY
     Route: 065

REACTIONS (5)
  - Gastrointestinal pain [Unknown]
  - Muscle spasms [Unknown]
  - Dyskinesia [Unknown]
  - Anxiety [Unknown]
  - Abdominal pain upper [Unknown]
